FAERS Safety Report 7786465-6 (Version None)
Quarter: 2011Q3

REPORT INFORMATION
  Report Type: 
  Country: None (occurrence: None)
  Receive Date: 20110929
  Receipt Date: 20110927
  Transmission Date: 20111222
  Serious: Yes (Other)
  Sender: FDA-Public Use
  Company Number: US-GLAXOSMITHKLINE-A0946263A

PATIENT
  Age: 20 Year
  Sex: Female

DRUGS (2)
  1. ALLI [Suspect]
     Indication: PRODUCT USED FOR UNKNOWN INDICATION
     Route: 048
     Dates: start: 20110601
  2. DULCOLAX [Concomitant]

REACTIONS (3)
  - RECTAL DISCHARGE [None]
  - INTENTIONAL DRUG MISUSE [None]
  - GASTROINTESTINAL DISORDER [None]
